FAERS Safety Report 23753794 (Version 2)
Quarter: 2024Q2

REPORT INFORMATION
  Report Type: Report from Study
  Country: US (occurrence: US)
  Receive Date: 20240417
  Receipt Date: 20240426
  Transmission Date: 20240716
  Serious: Yes (Other)
  Sender: FDA-Public Use
  Company Number: US-TAIHOP-2024-003866

PATIENT
  Age: 78 Year
  Sex: Female

DRUGS (1)
  1. LONSURF [Suspect]
     Active Substance: TIPIRACIL HYDROCHLORIDE\TRIFLURIDINE
     Indication: Colon cancer stage IV
     Dosage: FORM STRENGTH: 15 MG AND 20 MG;CYCLE 1
     Route: 048
     Dates: start: 20240408

REACTIONS (7)
  - Myocardial infarction [Unknown]
  - Pyrexia [Unknown]
  - Headache [Unknown]
  - Fatigue [Recovered/Resolved]
  - Dyspnoea exertional [Unknown]
  - Diarrhoea [Recovered/Resolved]
  - Asthenia [Unknown]

NARRATIVE: CASE EVENT DATE: 20240409
